FAERS Safety Report 9469604 (Version 3)
Quarter: 2013Q4

REPORT INFORMATION
  Report Type: Spontaneous
  Country: US (occurrence: US)
  Receive Date: 20130822
  Receipt Date: 20131205
  Transmission Date: 20140711
  Serious: Yes (Death)
  Sender: FDA-Public Use
  Company Number: US-BRISTOL-MYERS SQUIBB COMPANY-19190818

PATIENT
  Age: 71 Year
  Sex: Female

DRUGS (2)
  1. BYETTA [Suspect]
     Indication: TYPE 2 DIABETES MELLITUS
     Dates: start: 20050609, end: 200704
  2. JANUVIA [Suspect]
     Indication: TYPE 2 DIABETES MELLITUS
     Dates: start: 20081209, end: 200901

REACTIONS (2)
  - Pancreatic carcinoma [Fatal]
  - Breast cancer metastatic [Fatal]
